FAERS Safety Report 15222159 (Version 1)
Quarter: 2018Q3

REPORT INFORMATION
  Report Type: Spontaneous
  Country: US (occurrence: US)
  Receive Date: 20180705
  Receipt Date: 20180705
  Transmission Date: 20181010
  Serious: Yes (Death)
  Sender: FDA-Public Use
  Company Number: None

PATIENT
  Age: 22 Year
  Sex: Female
  Weight: 45 kg

DRUGS (14)
  1. PULMOZYME [Concomitant]
     Active Substance: DORNASE ALFA
  2. AZITHROMYCIN ANHYDROUS. [Concomitant]
     Active Substance: AZITHROMYCIN ANHYDROUS
  3. ZENPEP [Concomitant]
     Active Substance: PANCRELIPASE AMYLASE\PANCRELIPASE LIPASE\PANCRELIPASE PROTEASE
  4. PRILOSEC [Concomitant]
     Active Substance: OMEPRAZOLE MAGNESIUM
  5. ZANTAC [Concomitant]
     Active Substance: RANITIDINE HYDROCHLORIDE
  6. TOBRAMYCIN. [Concomitant]
     Active Substance: TOBRAMYCIN
  7. SYMDEKO [Suspect]
     Active Substance: IVACAFTOR\TEZACAFTOR
     Indication: CYSTIC FIBROSIS
  8. RHINOCORT [Concomitant]
     Active Substance: BUDESONIDE
  9. ZYRTEC [Concomitant]
     Active Substance: CETIRIZINE HYDROCHLORIDE
  10. COLISTIMETHATE [Concomitant]
     Active Substance: COLISTIMETHATE SODIUM
  11. MULTIVITAMIN [Concomitant]
     Active Substance: VITAMINS
  12. SCANDISHAKE [Concomitant]
     Active Substance: DIETARY SUPPLEMENT
  13. DULERA [Concomitant]
     Active Substance: FORMOTEROL FUMARATE DIHYDRATE\MOMETASONE FUROATE
  14. ALBUTEROL. [Concomitant]
     Active Substance: ALBUTEROL

REACTIONS (9)
  - Hypotension [None]
  - Pneumonia aspiration [None]
  - Vomiting [None]
  - Brain oedema [None]
  - Dyspnoea [None]
  - Headache [None]
  - Dehydration [None]
  - Areflexia [None]
  - Unresponsive to stimuli [None]

NARRATIVE: CASE EVENT DATE: 20180630
